FAERS Safety Report 25397170 (Version 1)
Quarter: 2025Q2

REPORT INFORMATION
  Report Type: Spontaneous
  Country: US (occurrence: None)
  Receive Date: 20250604
  Receipt Date: 20250604
  Transmission Date: 20250717
  Serious: Yes (Death)
  Sender: FDA-CTU
  Company Number: None

PATIENT
  Age: 92 Year
  Sex: Male
  Weight: 55.3 kg

DRUGS (11)
  1. REPATHA [Suspect]
     Active Substance: EVOLOCUMAB
     Indication: Hypercholesterolaemia
     Route: 058
     Dates: start: 20240103, end: 20250405
  2. Antivert 12.5mg tablets [Concomitant]
  3. Lidoderm 5% patch [Concomitant]
  4. LISINOPRIL [Concomitant]
     Active Substance: LISINOPRIL
  5. Multivitamin adults tablets 200^s [Concomitant]
  6. Tenormin 100mg tablets [Concomitant]
  7. Tylenol 500mg E/S (Acetaminophen) T [Concomitant]
  8. ABIRATERONE ACETATE [Concomitant]
     Active Substance: ABIRATERONE ACETATE
  9. ORGOVYX [Concomitant]
     Active Substance: RELUGOLIX
  10. PANTOPRAZOLE [Concomitant]
     Active Substance: PANTOPRAZOLE
  11. PREDNISOLONE [Concomitant]
     Active Substance: PREDNISOLONE

REACTIONS (1)
  - Death [None]

NARRATIVE: CASE EVENT DATE: 20250405
